FAERS Safety Report 17200449 (Version 1)
Quarter: 2019Q4

REPORT INFORMATION
  Report Type: Spontaneous
  Country: DE (occurrence: DE)
  Receive Date: 20191226
  Receipt Date: 20191226
  Transmission Date: 20200122
  Serious: Yes (Other)
  Sender: FDA-Public Use
  Company Number: DE-TEVA-2019-DE-1156963

PATIENT
  Age: 75 Year
  Sex: Male
  Weight: 74 kg

DRUGS (8)
  1. PREDNISOLONE. [Suspect]
     Active Substance: PREDNISOLONE
     Indication: PROSTATE CANCER
     Dosage: 5 MG
     Route: 065
     Dates: start: 201902
  2. ZYTIGA [Suspect]
     Active Substance: ABIRATERONE ACETATE
     Indication: PROSTATE CANCER
     Dosage: SINCE 4.5 YEARS, 1000 MG PER DAY
     Route: 048
     Dates: start: 201510
  3. ZOLEDRONIC ACID. [Concomitant]
     Active Substance: ZOLEDRONIC ACID
     Indication: PRODUCT USED FOR UNKNOWN INDICATION
     Dosage: 3-4 WEEKS
     Route: 065
     Dates: end: 201904
  4. PREDNISOLONE. [Suspect]
     Active Substance: PREDNISOLONE
     Dosage: 10 MG PER DAY
     Route: 065
     Dates: start: 201510
  5. VITAMIN D                          /00107901/ [Concomitant]
     Active Substance: ERGOCALCIFEROL
     Indication: NUTRITIONAL SUPPLEMENTATION
     Dosage: 1000 MILLIGRAM DAILY; VITAMIN C AND D 1000 MG/DAY
     Route: 065
  6. VITAMINE C [Concomitant]
     Active Substance: ASCORBIC ACID
     Indication: NUTRITIONAL SUPPLEMENTATION
     Dosage: 100 MILLIGRAM DAILY; VITAMIN C AND D 1000 MG/DAY
     Route: 065
  7. AMLODIPINE;CANDESARTAN [Concomitant]
     Active Substance: AMLODIPINE\CANDESARTAN CILEXETIL
     Indication: HYPERTENSION
     Dosage: 0.5 -1 MG
     Route: 065
     Dates: start: 2018
  8. ZOLEDRONIC ACID. [Concomitant]
     Active Substance: ZOLEDRONIC ACID
     Route: 065

REACTIONS (2)
  - Metastases to bone [Unknown]
  - Prostatic specific antigen increased [Not Recovered/Not Resolved]

NARRATIVE: CASE EVENT DATE: 2019
